FAERS Safety Report 4432503-8 (Version None)
Quarter: 2004Q3

REPORT INFORMATION
  Report Type: 
  Country: None (occurrence: None)
  Receive Date: 20040817
  Receipt Date: 20040805
  Transmission Date: 20050211
  Serious: Yes (Other)
  Sender: FDA-Public Use
  Company Number: 200410283BBE

PATIENT
  Age: 15 Year
  Sex: Male

DRUGS (3)
  1. KOATE [Suspect]
     Indication: FACTOR VIII DEFICIENCY
     Dates: start: 19870101
  2. PROFILATE [Suspect]
     Indication: FACTOR VIII DEFICIENCY
     Dates: start: 19850101, end: 19890101
  3. FACTORATE (FACTOR VIII (ANTIHAEMOPHILIC FACTOR) [Suspect]
     Indication: FACTOR VIII DEFICIENCY
     Dates: start: 19860101

REACTIONS (1)
  - HEPATITIS C [None]
